FAERS Safety Report 5233909-X (Version None)
Quarter: 2007Q1

REPORT INFORMATION
  Report Type: 
  Country: None (occurrence: None)
  Receive Date: 20070208
  Receipt Date: 20070202
  Transmission Date: 20070707
  Serious: Yes (Hospitalization)
  Sender: FDA-Public Use
  Company Number: GBWYE500102FEB07

PATIENT
  Sex: Female

DRUGS (1)
  1. EFFEXOR XR [Suspect]
     Dosage: 225 MG FREQUENCY UNKNOWN
     Route: 048

REACTIONS (3)
  - ABDOMINAL PAIN [None]
  - NAUSEA [None]
  - SURGERY [None]
